FAERS Safety Report 14553049 (Version 1)
Quarter: 2018Q1

REPORT INFORMATION
  Report Type: Spontaneous
  Country: PL (occurrence: PL)
  Receive Date: 20180220
  Receipt Date: 20180220
  Transmission Date: 20180509
  Serious: Yes (Life-Threatening, Hospitalization)
  Sender: FDA-Public Use
  Company Number: PL-MYLANLABS-2018M1010663

PATIENT
  Age: 58 Year
  Sex: Female

DRUGS (3)
  1. MYCOPHENOLATE MOFETIL. [Suspect]
     Active Substance: MYCOPHENOLATE MOFETIL
     Indication: RENAL TRANSPLANT
  2. SIMULECT [Suspect]
     Active Substance: BASILIXIMAB
     Indication: IMMUNE TOLERANCE INDUCTION
  3. ENVARSUS XR [Suspect]
     Active Substance: TACROLIMUS
     Indication: RENAL TRANSPLANT

REACTIONS (13)
  - Myocardial infarction [Recovered/Resolved]
  - Anaemia [Unknown]
  - Pneumonitis [Recovering/Resolving]
  - Haematoma [Recovering/Resolving]
  - Cardiac failure [Recovering/Resolving]
  - Immunosuppressant drug level increased [Unknown]
  - Electrolyte imbalance [Recovering/Resolving]
  - Cardiac arrest [Recovered/Resolved]
  - Inflammation [Recovering/Resolving]
  - Acid base balance abnormal [Recovering/Resolving]
  - Cardiogenic shock [Recovering/Resolving]
  - Hypotension [Recovering/Resolving]
  - Delayed graft function [Recovering/Resolving]
